FAERS Safety Report 8362681-X (Version None)
Quarter: 2012Q2

REPORT INFORMATION
  Report Type: 
  Country: None (occurrence: None)
  Receive Date: 20120516
  Receipt Date: 20111031
  Transmission Date: 20120825
  Serious: No
  Sender: FDA-Public Use
  Company Number: US-MYLANLABS-2011S1017102

PATIENT
  Age: 70 Year
  Sex: Female
  Weight: 58.06 kg

DRUGS (7)
  1. TOPROL-XL [Concomitant]
     Indication: BLOOD PRESSURE
     Route: 048
  2. RAMIPRIL [Concomitant]
     Indication: BLOOD PRESSURE
     Route: 048
     Dates: start: 20110719
  3. LISINOPRIL [Suspect]
     Indication: BLOOD PRESSURE INCREASED
     Route: 048
     Dates: start: 20110601, end: 20110701
  4. BUPROPION HYDROCHLORIDE [Suspect]
     Route: 048
     Dates: start: 20110601, end: 20110701
  5. LOVASTATIN [Suspect]
     Indication: BLOOD CHOLESTEROL INCREASED
     Route: 048
     Dates: start: 20110601, end: 20110701
  6. BUPROPION HYDROCHLORIDE [Suspect]
     Indication: DEPRESSION
     Route: 048
     Dates: start: 20110601, end: 20110701
  7. BUPROPION HYDROCHLORIDE [Suspect]
     Route: 048
     Dates: start: 20110601, end: 20110701

REACTIONS (4)
  - CHOLELITHIASIS [None]
  - DECREASED APPETITE [None]
  - BACK PAIN [None]
  - BONE PAIN [None]
